FAERS Safety Report 7533058-1 (Version None)
Quarter: 2011Q2

REPORT INFORMATION
  Report Type: 
  Country: None (occurrence: None)
  Receive Date: 20110608
  Receipt Date: 20110608
  Transmission Date: 20111010
  Serious: Yes (Hospitalization, Other)
  Sender: FDA-Public Use
  Company Number: US-ABBOTT-11P-163-0726960-00

PATIENT
  Sex: Male
  Weight: 149.37 kg

DRUGS (4)
  1. HUMIRA [Suspect]
     Indication: PSORIASIS
     Route: 058
     Dates: start: 20101016
  2. HUMIRA [Suspect]
  3. VIT C [Concomitant]
     Indication: PRODUCT USED FOR UNKNOWN INDICATION
  4. CENTRUM SILVER MULTIVITAMIN [Concomitant]
     Indication: PRODUCT USED FOR UNKNOWN INDICATION

REACTIONS (3)
  - CONSTIPATION [None]
  - FAECALOMA [None]
  - ABDOMINAL PAIN [None]
